FAERS Safety Report 5165679-8 (Version None)
Quarter: 2006Q4

REPORT INFORMATION
  Report Type: 
  Country: None (occurrence: None)
  Receive Date: 20061128
  Receipt Date: 20061120
  Transmission Date: 20070319
  Serious: Yes (Other)
  Sender: FDA-Public Use
  Company Number: S06-FRA-04270-01

PATIENT
  Sex: Female

DRUGS (3)
  1. SEROPLEX [Suspect]
  2. ANTIHYPERTENSIVES [Suspect]
  3. CHOLESTEROL AND TRIGLYCERIDE REDUCERS [Suspect]

REACTIONS (2)
  - BLOOD CREATINE PHOSPHOKINASE INCREASED [None]
  - MYALGIA [None]
